FAERS Safety Report 9180792 (Version 3)
Quarter: 2013Q4

REPORT INFORMATION
  Report Type: Report from Study
  Country: AU (occurrence: AU)
  Receive Date: 20130322
  Receipt Date: 20131226
  Transmission Date: 20140711
  Serious: Yes (Death, Hospitalization)
  Sender: FDA-Public Use
  Company Number: AU-CELGENEUS-008-21880-13030644

PATIENT
  Age: 58 Year
  Sex: Male

DRUGS (7)
  1. REVLIMID [Suspect]
     Indication: PLASMA CELL MYELOMA
     Route: 048
     Dates: start: 20121024, end: 20130302
  2. PREDNISOLONE [Suspect]
     Indication: PLASMA CELL MYELOMA
     Route: 065
     Dates: start: 20121024, end: 20130302
  3. BACTRIM DS [Concomitant]
     Indication: INFECTION PROPHYLAXIS
     Route: 065
  4. CRESTOR [Concomitant]
     Indication: HYPERLIPIDAEMIA
     Route: 065
  5. VITAMIN D [Concomitant]
     Indication: BONE DISORDER
     Route: 065
  6. CALCIUM [Concomitant]
     Indication: BONE DISORDER
     Route: 065
  7. ACICLOVIR [Concomitant]
     Indication: PROPHYLAXIS
     Route: 065

REACTIONS (1)
  - Lymphoma [Fatal]
